FAERS Safety Report 24664142 (Version 1)
Quarter: 2024Q4

REPORT INFORMATION
  Report Type: Spontaneous
  Country: AE (occurrence: AE)
  Receive Date: 20241126
  Receipt Date: 20241126
  Transmission Date: 20250115
  Serious: Yes (Hospitalization)
  Sender: DR REDDYS
  Company Number: AE-Sudair Pharmaceutical Company-202400023

PATIENT
  Age: 73 Year
  Sex: Male

DRUGS (2)
  1. PEMETREXED [Suspect]
     Active Substance: PEMETREXED
     Indication: Non-small cell lung cancer
     Dosage: 750 MG EVERY 3 WEEKS
     Route: 065
     Dates: start: 20240701
  2. ALIMTA [Suspect]
     Active Substance: PEMETREXED DISODIUM
     Indication: Non-small cell lung cancer
     Route: 065
     Dates: start: 20240701

REACTIONS (3)
  - Renal disorder [Not Recovered/Not Resolved]
  - Dizziness [Not Recovered/Not Resolved]
  - Asthenia [Not Recovered/Not Resolved]
